FAERS Safety Report 7978422-1 (Version None)
Quarter: 2011Q4

REPORT INFORMATION
  Report Type: 
  Country: None (occurrence: None)
  Receive Date: 20111214
  Receipt Date: 20111206
  Transmission Date: 20120403
  Serious: Yes (Other)
  Sender: FDA-Public Use
  Company Number: JP-JNJFOC-20111004701

PATIENT

DRUGS (1)
  1. TRAMADOL HYDROCHLORIDE/ACETAMINOPHEN [Suspect]
     Indication: PAIN
     Dosage: 1 PER 1 DAY, 3 TABLETS PER DAY, 3 TIMES DAILY
     Route: 048

REACTIONS (5)
  - NAUSEA [None]
  - MALAISE [None]
  - VOMITING [None]
  - DRUG LEVEL INCREASED [None]
  - HYPOKINESIA [None]
